FAERS Safety Report 5680925-X (Version None)
Quarter: 2008Q1

REPORT INFORMATION
  Report Type: 
  Country: None (occurrence: None)
  Receive Date: 20080326
  Receipt Date: 20080314
  Transmission Date: 20080703
  Serious: Yes (Other)
  Sender: FDA-Public Use
  Company Number: US-PFIZER INC-2008024266

PATIENT
  Sex: Female
  Weight: 59.9 kg

DRUGS (3)
  1. DILANTIN [Suspect]
     Indication: EPILEPSY
  2. LAMICTAL [Concomitant]
  3. SIMVASTATIN [Concomitant]

REACTIONS (6)
  - AGGRESSION [None]
  - ANTICONVULSANT DRUG LEVEL INCREASED [None]
  - DELUSION [None]
  - FATIGUE [None]
  - GRAND MAL CONVULSION [None]
  - PAIN [None]
